FAERS Safety Report 7552258-8 (Version None)
Quarter: 2011Q2

REPORT INFORMATION
  Report Type: 
  Country: None (occurrence: None)
  Receive Date: 20110616
  Receipt Date: 20030326
  Transmission Date: 20111010
  Serious: Yes (Hospitalization, Other)
  Sender: FDA-Public Use
  Company Number: PHBS2002AR15016

PATIENT
  Sex: Male

DRUGS (7)
  1. HALOPIDOL [Concomitant]
     Dosage: 40 MG, QD
  2. CLONAZEPAM [Concomitant]
     Dosage: 8 MG, QD
  3. NOZINAN [Concomitant]
  4. CLOZAPINE [Suspect]
     Indication: SCHIZOPHRENIA
     Dosage: 400 MG, QD
     Route: 048
     Dates: start: 20010606, end: 20021001
  5. LORAZEPAM [Concomitant]
  6. AMPLIACTIL [Concomitant]
     Dates: end: 20030211
  7. AKINETON [Concomitant]
     Dosage: 4 UNK, QD

REACTIONS (9)
  - LEUKOPENIA [None]
  - ACUTE MYELOID LEUKAEMIA [None]
  - NEUTROPENIA [None]
  - PANCYTOPENIA [None]
  - DEEP VEIN THROMBOSIS [None]
  - LYMPHOPENIA [None]
  - AGRANULOCYTOSIS [None]
  - ANAEMIA [None]
  - PLATELET COUNT DECREASED [None]
